FAERS Safety Report 9270390 (Version 2)
Quarter: 2013Q3

REPORT INFORMATION
  Report Type: Report from Study
  Country: DE (occurrence: DE)
  Receive Date: 20130503
  Receipt Date: 20130731
  Transmission Date: 20140515
  Serious: Yes (Hospitalization)
  Sender: FDA-Public Use
  Company Number: DE-ABBOTT-13P-062-1083093-00

PATIENT
  Sex: Male
  Weight: 117 kg

DRUGS (5)
  1. HUMIRA [Suspect]
     Indication: ANKYLOSING SPONDYLITIS
     Route: 050
     Dates: start: 20060101, end: 201211
  2. HUMIRA [Suspect]
     Route: 050
     Dates: start: 201211
  3. CORTISONE [Concomitant]
     Indication: ANKYLOSING SPONDYLITIS
  4. METHOTREXATE [Concomitant]
     Indication: ANKYLOSING SPONDYLITIS
  5. ANTIHYPERTENSIVES [Concomitant]
     Indication: HYPERTENSION

REACTIONS (5)
  - Carpal tunnel syndrome [Not Recovered/Not Resolved]
  - Rosacea [Not Recovered/Not Resolved]
  - Oral candidiasis [Not Recovered/Not Resolved]
  - Arthropathy [Unknown]
  - Drug effect incomplete [Not Recovered/Not Resolved]
